FAERS Safety Report 20315142 (Version 1)
Quarter: 2022Q1

REPORT INFORMATION
  Report Type: Spontaneous
  Country: US (occurrence: US)
  Receive Date: 20220110
  Receipt Date: 20220110
  Transmission Date: 20220424
  Serious: No
  Sender: FDA-Public Use
  Company Number: US-TELIGENT, INC-20210400029

PATIENT
  Sex: Female
  Weight: 52.15 kg

DRUGS (5)
  1. ECONAZOLE NITRATE [Suspect]
     Active Substance: ECONAZOLE NITRATE
     Indication: Tinea pedis
     Dosage: UNK UNK, BID
     Route: 061
     Dates: start: 202102, end: 202103
  2. ECONAZOLE NITRATE [Suspect]
     Active Substance: ECONAZOLE NITRATE
     Indication: Fungal infection
  3. ECONAZOLE NITRATE [Suspect]
     Active Substance: ECONAZOLE NITRATE
     Indication: Elephantiasis
  4. UREA [Concomitant]
     Active Substance: UREA
     Dosage: FOOT CREAM UNDERNEATH HER FOOT
     Route: 061
  5. CICLOPIROX [Concomitant]
     Active Substance: CICLOPIROX
     Route: 061

REACTIONS (1)
  - Drug ineffective [Unknown]

NARRATIVE: CASE EVENT DATE: 20210101
